FAERS Safety Report 25501943 (Version 5)
Quarter: 2025Q4

REPORT INFORMATION
  Report Type: Spontaneous
  Country: US (occurrence: US)
  Receive Date: 20250702
  Receipt Date: 20251015
  Transmission Date: 20260117
  Serious: Yes (Other)
  Sender: NOVARTIS
  Company Number: US-002147023-NVSC2025US104965

PATIENT
  Sex: Male
  Weight: 103.42 kg

DRUGS (11)
  1. PLUVICTO [Suspect]
     Active Substance: LUTETIUM LU-177 VIPIVOTIDE TETRAXETAN
     Indication: Hormone-refractory prostate cancer
     Dosage: 192.46 MCI
     Route: 042
     Dates: start: 20250218, end: 20250218
  2. PLUVICTO [Suspect]
     Active Substance: LUTETIUM LU-177 VIPIVOTIDE TETRAXETAN
     Dosage: 180.07 MCI
     Route: 042
     Dates: start: 20250408, end: 20250408
  3. PLUVICTO [Suspect]
     Active Substance: LUTETIUM LU-177 VIPIVOTIDE TETRAXETAN
     Dosage: 184.90 MCI
     Route: 042
     Dates: start: 20250520, end: 20250520
  4. ASPIRIN [Concomitant]
     Active Substance: ASPIRIN
     Indication: Product used for unknown indication
     Dosage: 8 MG
     Route: 065
  5. ATORVASTATIN [Concomitant]
     Active Substance: ATORVASTATIN
     Indication: Product used for unknown indication
     Dosage: UNK
     Route: 065
  6. FUROSEMIDE [Concomitant]
     Active Substance: FUROSEMIDE
     Indication: Product used for unknown indication
     Dosage: UNK
     Route: 065
  7. CALCIUM [Concomitant]
     Active Substance: CALCIUM
     Indication: Product used for unknown indication
     Dosage: UNK
     Route: 065
  8. LOSARTAN [Concomitant]
     Active Substance: LOSARTAN
     Indication: Product used for unknown indication
     Dosage: UNK
     Route: 065
  9. METOPROLOL [Concomitant]
     Active Substance: METOPROLOL
     Indication: Product used for unknown indication
     Dosage: UNK
     Route: 065
  10. ZETIA [Concomitant]
     Active Substance: EZETIMIBE
     Indication: Product used for unknown indication
     Dosage: UNK
     Route: 065
  11. SPIRONOLACTONE [Concomitant]
     Active Substance: SPIRONOLACTONE
     Indication: Product used for unknown indication
     Dosage: UNK
     Route: 065

REACTIONS (5)
  - Hormone-refractory prostate cancer [Not Recovered/Not Resolved]
  - Malignant neoplasm progression [Not Recovered/Not Resolved]
  - Full blood count decreased [Not Recovered/Not Resolved]
  - Prostatic specific antigen increased [Not Recovered/Not Resolved]
  - Therapy non-responder [Unknown]

NARRATIVE: CASE EVENT DATE: 20250101
